FAERS Safety Report 5570592-8 (Version None)
Quarter: 2007Q4

REPORT INFORMATION
  Report Type: 
  Country: None (occurrence: None)
  Receive Date: 20071219
  Receipt Date: 20071203
  Transmission Date: 20080405
  Serious: Yes (Hospitalization)
  Sender: FDA-Public Use
  Company Number: 2007BI019782

PATIENT
  Age: 56 Year
  Sex: Female
  Weight: 97.977 kg

DRUGS (2)
  1. AVONEX [Suspect]
     Indication: MULTIPLE SCLEROSIS
     Dosage: 30 UG,QW;IM
     Route: 030
     Dates: start: 20000601, end: 20050712
  2. AVONEX [Suspect]
     Indication: MULTIPLE SCLEROSIS
     Dosage: 30 UG,QW;IM
     Route: 030
     Dates: start: 20050719

REACTIONS (8)
  - ABASIA [None]
  - BACK PAIN [None]
  - FALL [None]
  - HEADACHE [None]
  - HEMIPARESIS [None]
  - MULTIPLE SCLEROSIS [None]
  - NEUROPATHY PERIPHERAL [None]
  - POLLAKIURIA [None]
